FAERS Safety Report 17970550 (Version 2)
Quarter: 2020Q4

REPORT INFORMATION
  Report Type: Spontaneous
  Country: US (occurrence: US)
  Receive Date: 20200702
  Receipt Date: 20201119
  Transmission Date: 20210113
  Serious: Yes (Death, Other)
  Sender: FDA-Public Use
  Company Number: US-AMGEN-USASP2020103738

PATIENT
  Sex: Female

DRUGS (1)
  1. PROCRIT [Suspect]
     Active Substance: ERYTHROPOIETIN
     Indication: PRODUCT USED FOR UNKNOWN INDICATION
     Dosage: 20000 IU INTERNATIONAL UNIT(S)
     Route: 065
     Dates: start: 202003, end: 202003

REACTIONS (5)
  - Pulmonary embolism [Fatal]
  - Nausea [Fatal]
  - Diarrhoea [Fatal]
  - Retching [Fatal]
  - Vomiting [Fatal]

NARRATIVE: CASE EVENT DATE: 202004
